FAERS Safety Report 5560039-X (Version None)
Quarter: 2007Q4

REPORT INFORMATION
  Report Type: 
  Country: None (occurrence: None)
  Receive Date: 20071214
  Receipt Date: 20071129
  Transmission Date: 20080405
  Serious: No
  Sender: FDA-Public Use
  Company Number: US-ABBOTT-07P-163-0422691-00

PATIENT
  Sex: Female
  Weight: 86.26 kg

DRUGS (5)
  1. HUMIRA [Suspect]
     Indication: RHEUMATOID ARTHRITIS
     Route: 058
     Dates: start: 20060101
  2. VALSARTAN [Concomitant]
     Indication: HYPERTENSION
     Route: 048
  3. METOPROLOL TARTRATE [Concomitant]
     Indication: HYPERTENSION
     Route: 048
  4. DULOXETINE HYDROCHLORIDE [Concomitant]
     Indication: DEPRESSION
     Route: 048
  5. METHOTREXATE [Concomitant]
     Indication: RHEUMATOID ARTHRITIS
     Route: 048

REACTIONS (16)
  - ACCIDENT AT WORK [None]
  - ALOPECIA [None]
  - ANXIETY [None]
  - BLOOD PRESSURE INCREASED [None]
  - DEPRESSION [None]
  - ECZEMA [None]
  - HEADACHE [None]
  - OEDEMA PERIPHERAL [None]
  - PAIN [None]
  - PRURITUS [None]
  - PSORIASIS [None]
  - PUSTULAR PSORIASIS [None]
  - RASH [None]
  - SCAR [None]
  - SKIN DISCOLOURATION [None]
  - SKIN EXFOLIATION [None]
